FAERS Safety Report 25827811 (Version 1)
Quarter: 2025Q3

REPORT INFORMATION
  Report Type: Other
  Country: US (occurrence: US)
  Receive Date: 20250921
  Receipt Date: 20250921
  Transmission Date: 20251020
  Serious: No
  Sender: TRAVERE THERAPEUTICS
  Company Number: US-TRAVERE-2025TVT01268

PATIENT
  Age: 38 Year
  Sex: Female

DRUGS (1)
  1. FILSPARI [Suspect]
     Active Substance: SPARSENTAN
     Indication: Haematuria
     Route: 048
     Dates: start: 20250211

REACTIONS (4)
  - Weight increased [Unknown]
  - Fatigue [Unknown]
  - Peripheral swelling [Unknown]
  - Product use in unapproved indication [Unknown]
